FAERS Safety Report 8005682-3 (Version None)
Quarter: 2011Q4

REPORT INFORMATION
  Report Type: 
  Country: None (occurrence: None)
  Receive Date: 20111223
  Receipt Date: 20111214
  Transmission Date: 20120403
  Serious: Yes (Hospitalization)
  Sender: FDA-Public Use
  Company Number: CA-ROCHE-1024071

PATIENT
  Sex: Female

DRUGS (8)
  1. PREDNISONE TAB [Concomitant]
  2. ALVESCO [Concomitant]
  3. XOLAIR [Suspect]
     Indication: ASTHMA
     Route: 058
     Dates: start: 20101008
  4. XOLAIR [Suspect]
     Dates: start: 20110329
  5. ADVAIR DISKUS 100/50 [Concomitant]
  6. SINGULAIR [Concomitant]
  7. VENTOLIN [Concomitant]
  8. AMOXICILLIN AND CLAVULANATE POTASSIUM [Concomitant]
     Indication: BRONCHITIS
     Dates: start: 20110323

REACTIONS (9)
  - PNEUMONIA [None]
  - PHLEBITIS [None]
  - PRODUCTIVE COUGH [None]
  - PULMONARY CONGESTION [None]
  - ARTERIOSCLEROSIS [None]
  - BRONCHITIS [None]
  - GASTROENTERITIS [None]
  - COUGH [None]
  - ASTHENIA [None]
